FAERS Safety Report 8566494-5 (Version None)
Quarter: 2012Q3

REPORT INFORMATION
  Report Type: 
  Country: None (occurrence: None)
  Receive Date: 20120803
  Receipt Date: 20111230
  Transmission Date: 20120928
  Serious: No
  Sender: FDA-Public Use
  Company Number: US-ABBOTT-11P-163-0887850-00

PATIENT
  Sex: Female
  Weight: 77.18 kg

DRUGS (3)
  1. NIASPAN [Suspect]
     Indication: BLOOD CHOLESTEROL INCREASED
  2. AMLODIPINE [Concomitant]
     Indication: HYPERTENSION
     Dosage: NOT REPORTED
  3. NIASPAN [Suspect]
     Indication: BLOOD TRIGLYCERIDES INCREASED
     Dates: start: 20111224

REACTIONS (7)
  - CHEST PAIN [None]
  - FLATULENCE [None]
  - MUSCLE SPASMS [None]
  - FEELING HOT [None]
  - NAUSEA [None]
  - BACK PAIN [None]
  - HEADACHE [None]
